FAERS Safety Report 16409998 (Version 2)
Quarter: 2019Q2

REPORT INFORMATION
  Report Type: Spontaneous
  Country: US (occurrence: US)
  Receive Date: 20190610
  Receipt Date: 20190610
  Transmission Date: 20190711
  Serious: Yes (Other)
  Sender: FDA-Public Use
  Company Number: US-GILEAD-2019-0412415

PATIENT
  Age: 53 Year
  Sex: Male

DRUGS (2)
  1. PREZISTA [Concomitant]
     Active Substance: DARUNAVIR ETHANOLATE
     Indication: HIV INFECTION
     Dosage: UNK
  2. TYBOST [Suspect]
     Active Substance: COBICISTAT
     Indication: HIV INFECTION
     Dosage: UNK
     Route: 065
     Dates: start: 2015

REACTIONS (5)
  - Viral mutation identified [Unknown]
  - Product supply issue [Not Recovered/Not Resolved]
  - CD4 lymphocytes decreased [Recovering/Resolving]
  - Anogenital warts [Unknown]
  - Anal squamous cell carcinoma [Unknown]
